FAERS Safety Report 9804544 (Version 1)
Quarter: 2014Q1

REPORT INFORMATION
  Report Type: Spontaneous
  Country: GB (occurrence: GB)
  Receive Date: 20140108
  Receipt Date: 20140108
  Transmission Date: 20141002
  Serious: Yes (Hospitalization, Other)
  Sender: FDA-Public Use
  Company Number: GB-WATSON-2013-24051

PATIENT
  Sex: Female

DRUGS (5)
  1. BACLOFEN (UNKNOWN) [Suspect]
     Indication: PRODUCT USED FOR UNKNOWN INDICATION
     Dosage: 1770 ?G, DAILY
     Route: 037
  2. BACLOFEN (UNKNOWN) [Suspect]
     Dosage: UNK
     Route: 037
  3. BACLOFEN (UNKNOWN) [Suspect]
     Dosage: 100 ?G, DAILY
     Route: 037
  4. BACLOFEN (UNKNOWN) [Suspect]
     Dosage: 1770 ?G, DAILY
     Route: 037
  5. BACLOFEN (UNKNOWN) [Suspect]
     Dosage: 300 MCG/ML, UNK
     Route: 037

REACTIONS (4)
  - Loss of consciousness [Recovered/Resolved]
  - Muscle spasticity [Recovered/Resolved]
  - Overdose [Recovered/Resolved]
  - No therapeutic response [Recovered/Resolved]
